FAERS Safety Report 19762238 (Version 1)
Quarter: 2021Q3

REPORT INFORMATION
  Report Type: Report from Study
  Country: US (occurrence: US)
  Receive Date: 20210830
  Receipt Date: 20210830
  Transmission Date: 20211014
  Serious: No
  Sender: FDA-Public Use
  Company Number: US-BIOVITRUM-2021US6923

PATIENT
  Age: 47 Year
  Sex: Female

DRUGS (7)
  1. METHOTREXATE. [Concomitant]
     Active Substance: METHOTREXATE
  2. LISINOPRIL. [Concomitant]
     Active Substance: LISINOPRIL
  3. FOLIC ACID. [Concomitant]
     Active Substance: FOLIC ACID
  4. NEXIUM [Concomitant]
     Active Substance: ESOMEPRAZOLE MAGNESIUM
  5. KINERET [Suspect]
     Active Substance: ANAKINRA
     Indication: STILL^S DISEASE
     Route: 058
     Dates: start: 20210707
  6. BUMEX [Concomitant]
     Active Substance: BUMETANIDE
  7. METFORMIN [Concomitant]
     Active Substance: METFORMIN HYDROCHLORIDE

REACTIONS (5)
  - Injection site pain [Unknown]
  - Injection site rash [Unknown]
  - Injection site erythema [Unknown]
  - Drug intolerance [Unknown]
  - Off label use [Recovered/Resolved]

NARRATIVE: CASE EVENT DATE: 20210707
